FAERS Safety Report 5693735-4 (Version None)
Quarter: 2008Q2

REPORT INFORMATION
  Report Type: 
  Country: None (occurrence: None)
  Receive Date: 20080403
  Receipt Date: 20080326
  Transmission Date: 20081010
  Serious: Yes (Death, Hospitalization)
  Sender: FDA-Public Use
  Company Number: NL-ROCHE-555164

PATIENT
  Age: 65 Year
  Sex: Male

DRUGS (10)
  1. CAPECITABINE [Suspect]
     Indication: COLORECTAL CANCER
     Dosage: TDD REPORTED AS 2 X 1000 MG.
     Route: 048
     Dates: start: 20071109, end: 20071204
  2. BEVACIZUMAB [Suspect]
     Indication: COLORECTAL CANCER
     Dosage: TDD REPORTED AS 1 X 472.5 MG
     Route: 042
     Dates: start: 20071109, end: 20071109
  3. ACETAMINOPHEN [Concomitant]
     Dosage: TDD REPORTED AS 4 X 1 GM.
  4. DICLOFENAC SODIUM [Concomitant]
     Dosage: TDD REPORTED AS 3 X 50 MG
  5. GLIMEPIRIDE [Concomitant]
     Dosage: TDD REPORTED AS 1 X 1 MG
  6. METOCLOPRAMIDE [Concomitant]
     Dosage: TDD REPORTED AS 3 X 10 MG.
  7. NEXIUM [Concomitant]
     Dosage: TDD REPORTED AS 1 X 10 MG.
  8. CELIPROLOL [Concomitant]
     Dosage: TDD REPORTED AS 1 X 200 MG.
  9. MOVICOLON [Concomitant]
     Dosage: TDD REPORTED AS 3 X 1 SACHET.
  10. ASCALCIN [Concomitant]
     Dosage: TDD REPORTED AS 1 X 10 MG. DRUG NAME REPORTED AS ^ASCAL CARECLIN^

REACTIONS (2)
  - INTESTINAL OBSTRUCTION [None]
  - NEOPLASM PROGRESSION [None]
